FAERS Safety Report 5606014-8 (Version None)
Quarter: 2008Q1

REPORT INFORMATION
  Report Type: 
  Country: None (occurrence: None)
  Receive Date: 20080123
  Receipt Date: 20080123
  Transmission Date: 20080703
  Serious: Yes (Life-Threatening)
  Sender: FDA-Public Use
  Company Number: None

PATIENT
  Age: 82 Year
  Sex: Male
  Weight: 72.5755 kg

DRUGS (2)
  1. CHANTIX [Suspect]
     Indication: SMOKING CESSATION THERAPY
     Dates: start: 20070429, end: 20070701
  2. PLAVIX [Concomitant]

REACTIONS (5)
  - ANHEDONIA [None]
  - DEPRESSION [None]
  - HYPERSOMNIA [None]
  - IMPAIRED SELF-CARE [None]
  - SUICIDAL IDEATION [None]
